FAERS Safety Report 19734573 (Version 3)
Quarter: 2022Q2

REPORT INFORMATION
  Report Type: Spontaneous
  Country: FR (occurrence: FR)
  Receive Date: 20210824
  Receipt Date: 20220606
  Transmission Date: 20220720
  Serious: Yes (Other)
  Sender: FDA-Public Use
  Company Number: FR-002147023-NVSC2020FR318374

PATIENT
  Age: 63 Year
  Sex: Male
  Weight: 100 kg

DRUGS (27)
  1. VALGANCICLOVIR [Suspect]
     Active Substance: VALGANCICLOVIR
     Indication: Cytomegalovirus infection
     Dosage: UNK
     Route: 065
     Dates: start: 20200718
  2. VALGANCICLOVIR [Suspect]
     Active Substance: VALGANCICLOVIR
     Indication: Product used for unknown indication
     Dosage: 450 MILLIGRAM, ONCE A DAY
     Route: 065
     Dates: start: 20200902
  3. TACROLIMUS [Suspect]
     Active Substance: TACROLIMUS
     Indication: Prophylaxis against transplant rejection
     Dosage: 10 MILLIGRAM (1MG)
     Route: 065
     Dates: start: 20200717, end: 20200717
  4. TACROLIMUS [Suspect]
     Active Substance: TACROLIMUS
     Dosage: 20 MILLIGRAM, ONCE A DAY (10 MG, BID (0.5MG))
     Route: 065
     Dates: start: 20200718, end: 20200719
  5. TACROLIMUS [Suspect]
     Active Substance: TACROLIMUS
     Dosage: 5 MILLIGRAM, ONCE A DAY (0.5MG ONCE MORNING)
     Route: 065
     Dates: start: 20200720, end: 20200721
  6. TACROLIMUS [Suspect]
     Active Substance: TACROLIMUS
     Dosage: 16 MILLIGRAM, ONCE A DAY (8 MG, BID (0.5MG))
     Route: 065
     Dates: start: 20200722, end: 20200727
  7. TACROLIMUS [Suspect]
     Active Substance: TACROLIMUS
     Dosage: 6 MILLIGRAM
     Route: 048
     Dates: start: 20200727, end: 20200801
  8. TACROLIMUS [Suspect]
     Active Substance: TACROLIMUS
     Dosage: 4 MILLIGRAM
     Route: 048
     Dates: start: 20200801, end: 20200806
  9. TACROLIMUS [Suspect]
     Active Substance: TACROLIMUS
     Dosage: 2 MILLIGRAM
     Route: 048
     Dates: start: 20200806, end: 20200917
  10. TACROLIMUS [Suspect]
     Active Substance: TACROLIMUS
     Dosage: 2.5 MILLIGRAM
     Route: 048
     Dates: start: 20200917, end: 20201001
  11. TACROLIMUS [Suspect]
     Active Substance: TACROLIMUS
     Dosage: 2 MILLIGRAM
     Route: 048
     Dates: start: 20201001, end: 20201007
  12. TACROLIMUS [Suspect]
     Active Substance: TACROLIMUS
     Dosage: 1.5 MILLIGRAM
     Route: 048
     Dates: start: 20201007, end: 20201022
  13. TACROLIMUS [Suspect]
     Active Substance: TACROLIMUS
     Dosage: 2 MILLIGRAM
     Route: 048
     Dates: start: 20201022, end: 20201113
  14. TACROLIMUS [Suspect]
     Active Substance: TACROLIMUS
     Dosage: 1.5 MILLIGRAM
     Route: 048
     Dates: start: 20201113, end: 20201125
  15. TACROLIMUS [Suspect]
     Active Substance: TACROLIMUS
     Dosage: 1 MILLIGRAM
     Route: 048
     Dates: start: 20201125, end: 20201209
  16. TACROLIMUS [Suspect]
     Active Substance: TACROLIMUS
     Dosage: 2 MILLIGRAM
     Route: 048
     Dates: start: 20201209, end: 20201224
  17. TACROLIMUS [Suspect]
     Active Substance: TACROLIMUS
     Dosage: 1 MILLIGRAM
     Route: 048
     Dates: start: 20201224
  18. MYFORTIC [Suspect]
     Active Substance: MYCOPHENOLATE SODIUM
     Indication: Prophylaxis against transplant rejection
     Dosage: 720 MILLIGRAM, ONCE A DAY (360 MG, BID)
     Route: 065
     Dates: start: 20200804, end: 20201202
  19. VALGANCICLOVIR HYDROCHLORIDE [Suspect]
     Active Substance: VALGANCICLOVIR HYDROCHLORIDE
     Indication: Antiviral prophylaxis
     Dosage: 450 MILLIGRAM EVERY 48 HOUR
     Route: 065
     Dates: start: 20200718
  20. VALGANCICLOVIR HYDROCHLORIDE [Suspect]
     Active Substance: VALGANCICLOVIR HYDROCHLORIDE
     Indication: Cytomegalovirus infection
     Dosage: 900 MILLIGRAM, ONCE A DAY (450 MG, BID)
     Route: 065
     Dates: start: 20201125
  21. ASPIRIN [Concomitant]
     Active Substance: ASPIRIN
     Indication: Product used for unknown indication
     Dosage: UNK
     Route: 065
     Dates: start: 20200718
  22. AMLODIPINE [Concomitant]
     Active Substance: AMLODIPINE BESYLATE
     Indication: Product used for unknown indication
     Dosage: UNK
     Route: 065
     Dates: start: 20200723
  23. ATORVASTATIN [Concomitant]
     Active Substance: ATORVASTATIN
     Indication: Product used for unknown indication
     Dosage: UNK
     Route: 065
     Dates: start: 20200718
  24. BISOPROLOL [Concomitant]
     Active Substance: BISOPROLOL
     Indication: Product used for unknown indication
     Dosage: UNK
     Route: 065
     Dates: start: 20200720
  25. LEUCOVORIN CALCIUM [Concomitant]
     Active Substance: LEUCOVORIN CALCIUM
     Indication: Product used for unknown indication
     Dosage: UNK
     Route: 065
     Dates: start: 20200720
  26. Mpa [Concomitant]
     Indication: Product used for unknown indication
     Dosage: UNK
     Route: 065
     Dates: start: 20200717, end: 20201202
  27. SULFAMETHOXAZOLE AND TRIMETHOPRIM [Concomitant]
     Active Substance: SULFAMETHOXAZOLE\TRIMETHOPRIM
     Indication: Product used for unknown indication
     Dosage: UNK
     Route: 065
     Dates: start: 20200717

REACTIONS (7)
  - Renal impairment [Recovered/Resolved]
  - Neutropenia [Recovered/Resolved]
  - Leukopenia [Recovered/Resolved]
  - Cytomegalovirus infection [Recovered/Resolved]
  - Gamma-glutamyltransferase increased [Recovered/Resolved]
  - Incorrect dose administered [Recovered/Resolved]
  - Overdose [Recovered/Resolved]

NARRATIVE: CASE EVENT DATE: 20200718
